FAERS Safety Report 9364353 (Version 3)
Quarter: 2013Q3

REPORT INFORMATION
  Report Type: Spontaneous
  Country: US (occurrence: None)
  Receive Date: 20130619
  Receipt Date: 20130724
  Transmission Date: 20140515
  Serious: Yes (Other)
  Sender: FDA-Public Use
  Company Number: JPI-P-032909

PATIENT
  Age: 55 Year
  Sex: Female

DRUGS (1)
  1. XYREM [Suspect]
     Indication: NARCOLEPSY
     Dosage: ( 2.25 GM ,2 IN 1 D) ORAL
     Route: 048
     Dates: start: 20090730

REACTIONS (3)
  - Rheumatoid arthritis [None]
  - Gout [None]
  - Pain [None]
